FAERS Safety Report 5398114-5 (Version None)
Quarter: 2007Q3

REPORT INFORMATION
  Report Type: 
  Country: None (occurrence: None)
  Receive Date: 20070726
  Receipt Date: 20070717
  Transmission Date: 20080115
  Serious: Yes (Other)
  Sender: FDA-Public Use
  Company Number: US-PFIZER INC-2007060089

PATIENT
  Age: 18 Year
  Sex: Male
  Weight: 90.7 kg

DRUGS (1)
  1. VIAGRA [Suspect]
     Route: 048

REACTIONS (4)
  - ERECTION INCREASED [None]
  - INTENTIONAL DRUG MISUSE [None]
  - PENILE DISCHARGE [None]
  - SKIN DISCOLOURATION [None]
